FAERS Safety Report 25172041 (Version 1)
Quarter: 2025Q2

REPORT INFORMATION
  Report Type: Spontaneous
  Country: FR (occurrence: FR)
  Receive Date: 20250408
  Receipt Date: 20250408
  Transmission Date: 20250716
  Serious: Yes (Other)
  Sender: RANBAXY
  Company Number: FR-SUN PHARMACEUTICAL INDUSTRIES LTD-2025RR-502386

PATIENT
  Age: 69 Year
  Sex: Male

DRUGS (1)
  1. CLOPIDOGREL [Interacting]
     Active Substance: CLOPIDOGREL BISULFATE
     Indication: Arterial disorder
     Dosage: 75 MILLIGRAM, DAILY
     Route: 065

REACTIONS (3)
  - Subcutaneous haematoma [Recovered/Resolved]
  - Ecchymosis [Recovered/Resolved]
  - Food interaction [Recovered/Resolved]

NARRATIVE: CASE EVENT DATE: 20220901
